FAERS Safety Report 6178332-9 (Version None)
Quarter: 2009Q2

REPORT INFORMATION
  Report Type: 
  Country: None (occurrence: None)
  Receive Date: 20090504
  Receipt Date: 20070917
  Transmission Date: 20091009
  Serious: No
  Sender: FDA-Public Use
  Company Number: US-ALEXION-A200700062

PATIENT

DRUGS (18)
  1. SOLIRIS [Suspect]
     Indication: PAROXYSMAL NOCTURNAL HAEMOGLOBINURIA
     Dosage: 600 MG, SINGLE
     Route: 042
     Dates: start: 20070530, end: 20070530
  2. SOLIRIS [Suspect]
     Dosage: 600 MG, SINGLE
     Route: 042
     Dates: start: 20070606, end: 20070606
  3. SOLIRIS [Suspect]
     Dosage: 600 MG, SINGLE
     Route: 042
     Dates: start: 20070613, end: 20070613
  4. SOLIRIS [Suspect]
     Dosage: 600 MG, SINGLE
     Route: 042
     Dates: start: 20070620, end: 20070620
  5. SOLIRIS [Suspect]
     Dosage: 900 MG, SINGLE
     Route: 042
     Dates: start: 20070627, end: 20070627
  6. SOLIRIS [Suspect]
     Dosage: 900 MG, SINGLE
     Route: 042
     Dates: start: 20070711, end: 20070711
  7. SOLIRIS [Suspect]
     Dosage: 900 MG, SINGLE
     Route: 042
     Dates: start: 20070720, end: 20070720
  8. SOLIRIS [Suspect]
     Dosage: 900 MG, SINGLE
     Route: 042
     Dates: start: 20070808, end: 20070808
  9. SOLIRIS [Suspect]
     Dosage: 900 MG, SINGLE
     Route: 042
     Dates: start: 20070822, end: 20070822
  10. SOLIRIS [Suspect]
     Dosage: 900 MG, SINGLE
     Route: 042
     Dates: start: 20070905, end: 20070905
  11. SOLIRIS [Suspect]
     Dosage: 900 MG, SINGLE
     Route: 042
     Dates: start: 20070919, end: 20070919
  12. FOLIC ACID [Concomitant]
     Dosage: UNK, QD
     Route: 048
  13. PREDNISONE [Concomitant]
     Dosage: UNK, QD
     Route: 048
  14. CARDIZEM [Concomitant]
     Indication: HYPERTENSION
     Dosage: UNK, QD
     Route: 048
  15. TOPROL-XL [Concomitant]
     Indication: HYPERTENSION
     Dosage: UNK, QD
     Route: 048
  16. ACIPHEX [Concomitant]
     Dosage: UNK, QD
     Route: 048
  17. IMODIUM                            /00384302/ [Concomitant]
     Dosage: UNK, QD
     Route: 048
  18. EXJADE [Concomitant]
     Dosage: UNK, QD
     Route: 048

REACTIONS (2)
  - FATIGUE [None]
  - SERUM FERRITIN INCREASED [None]
